FAERS Safety Report 24997646 (Version 1)
Quarter: 2025Q1

REPORT INFORMATION
  Report Type: Spontaneous
  Country: PT (occurrence: PT)
  Receive Date: 20250222
  Receipt Date: 20250222
  Transmission Date: 20250409
  Serious: Yes (Hospitalization, Other)
  Sender: Long Grove Pharmaceuticals
  Company Number: PT-Long Grove-000099

PATIENT
  Age: 45 Year
  Sex: Female

DRUGS (4)
  1. SODIUM BICARBONATE [Suspect]
     Active Substance: SODIUM BICARBONATE
     Indication: Nausea
  2. MAGNESIUM CARBONATE [Suspect]
     Active Substance: MAGNESIUM CARBONATE
     Indication: Nausea
  3. SODIUM BICARBONATE [Suspect]
     Active Substance: SODIUM BICARBONATE
     Indication: Vomiting
  4. MAGNESIUM CARBONATE [Suspect]
     Active Substance: MAGNESIUM CARBONATE
     Indication: Vomiting

REACTIONS (9)
  - Toxicity to various agents [Unknown]
  - Metabolic alkalosis [Unknown]
  - Respiratory acidosis [Unknown]
  - Hypokalaemia [Unknown]
  - Hypochloraemia [Unknown]
  - Hypochromic anaemia [Unknown]
  - Acute kidney injury [Unknown]
  - Proteinuria [Unknown]
  - Hypovolaemia [Unknown]
